FAERS Safety Report 5361532-5 (Version None)
Quarter: 2007Q2

REPORT INFORMATION
  Report Type: 
  Country: None (occurrence: None)
  Receive Date: 20070619
  Receipt Date: 20070608
  Transmission Date: 20071010
  Serious: Yes (Hospitalization, Other)
  Sender: FDA-Public Use
  Company Number: PHEH2007US08536

PATIENT
  Age: 75 Year
  Sex: Male

DRUGS (3)
  1. ZELNORM [Suspect]
     Indication: IRRITABLE BOWEL SYNDROME
     Dosage: 6 MG, BID
     Route: 048
     Dates: start: 20021201, end: 20070401
  2. ASPIRIN [Concomitant]
     Dosage: 81 MG, UNK
  3. BENADRYL ^PFIZER WARNER-LAMBERT^ [Concomitant]

REACTIONS (3)
  - CHOLECYSTECTOMY [None]
  - DIVERTICULITIS [None]
  - LARGE INTESTINE PERFORATION [None]
